FAERS Safety Report 7705390-X (Version None)
Quarter: 2011Q3

REPORT INFORMATION
  Report Type: 
  Country: None (occurrence: None)
  Receive Date: 20110818
  Receipt Date: 20110803
  Transmission Date: 20111222
  Serious: Yes (Hospitalization)
  Sender: FDA-Public Use
  Company Number: PRAN20110003

PATIENT
  Age: 18 Year
  Sex: Male

DRUGS (2)
  1. ALCOHOL (ETHANOL) (ETHANOL) [Concomitant]
  2. PROPRANOLOL [Suspect]
     Indication: INVESTIGATION
     Dosage: 80 MG, ONCE, ORAL
     Route: 048

REACTIONS (8)
  - LOSS OF CONSCIOUSNESS [None]
  - FEELING HOT [None]
  - BLOOD PRESSURE DECREASED [None]
  - BRADYCARDIA [None]
  - CARDIO-RESPIRATORY ARREST [None]
  - HUNGER [None]
  - CONVULSION [None]
  - FALL [None]
